FAERS Safety Report 6087531-6 (Version None)
Quarter: 2009Q1

REPORT INFORMATION
  Report Type: 
  Country: None (occurrence: None)
  Receive Date: 20090219
  Receipt Date: 20090210
  Transmission Date: 20090719
  Serious: Yes (Congenital Anomaly)
  Sender: FDA-Public Use
  Company Number: 8037269

PATIENT
  Sex: Male
  Weight: 3.607 kg

DRUGS (4)
  1. KEPPRA [Suspect]
     Indication: EPILEPSY
     Dosage: 1500 MG 2/D TRP
     Route: 064
     Dates: start: 20071017, end: 20080707
  2. FOLIC ACID [Concomitant]
  3. VITAMIN TAB [Concomitant]
  4. IRON [Concomitant]

REACTIONS (10)
  - BRONCHIAL HYPERREACTIVITY [None]
  - CLEFT LIP [None]
  - CLEFT PALATE [None]
  - IRRITABILITY [None]
  - MATERNAL DRUGS AFFECTING FOETUS [None]
  - ORAL CANDIDIASIS [None]
  - OTITIS MEDIA [None]
  - RESPIRATORY TRACT CONGESTION [None]
  - UPPER RESPIRATORY TRACT INFECTION [None]
  - WHEEZING [None]
